FAERS Safety Report 25627096 (Version 2)
Quarter: 2025Q3

REPORT INFORMATION
  Report Type: Spontaneous
  Country: EU (occurrence: EU)
  Receive Date: 20250731
  Receipt Date: 20250812
  Transmission Date: 20251020
  Serious: Yes (Death, Other)
  Sender: BAYER HEALTHCARE PHARMACEUTICALS INC.
  Company Number: EU-BAYER-2025A100493

PATIENT
  Age: 79 Year
  Sex: Female

DRUGS (1)
  1. ULTRAVIST [Suspect]
     Active Substance: IOPROMIDE
     Indication: Arteriogram carotid
     Route: 042
     Dates: start: 20250728, end: 20250728

REACTIONS (6)
  - Cough [Fatal]
  - Discomfort [Fatal]
  - Loss of consciousness [Fatal]
  - Fatigue [Fatal]
  - Urinary incontinence [None]
  - Cardiac arrest [None]

NARRATIVE: CASE EVENT DATE: 20250728
